FAERS Safety Report 24033751 (Version 1)
Quarter: 2024Q3

REPORT INFORMATION
  Report Type: Other
  Country: US (occurrence: US)
  Receive Date: 20240701
  Receipt Date: 20240701
  Transmission Date: 20241016
  Serious: No
  Sender: APOTEX
  Company Number: US-APOTEX-2024AP007489

PATIENT
  Sex: Female

DRUGS (1)
  1. LENALIDOMIDE [Suspect]
     Active Substance: LENALIDOMIDE
     Indication: Neoplasm malignant
     Dosage: 10 MILLIGRAM
     Route: 065

REACTIONS (1)
  - White blood cell count decreased [Unknown]
